FAERS Safety Report 22167759 (Version 6)
Quarter: 2023Q2

REPORT INFORMATION
  Report Type: Spontaneous
  Country: SA (occurrence: SA)
  Receive Date: 20230403
  Receipt Date: 20230626
  Transmission Date: 20230721
  Serious: Yes (Hospitalization, Other)
  Sender: FDA-Public Use
  Company Number: SA-002147023-NVSC2023SA074000

PATIENT
  Age: 2 Year
  Sex: Male

DRUGS (1)
  1. ONASEMNOGENE ABEPARVOVEC [Suspect]
     Active Substance: ONASEMNOGENE ABEPARVOVEC
     Indication: Spinal muscular atrophy
     Dosage: UNK, ONCE/SINGLE
     Route: 042
     Dates: start: 20210809

REACTIONS (13)
  - Pneumonia bacterial [Unknown]
  - Respiratory distress [Recovered/Resolved]
  - Bowel movement irregularity [Recovered/Resolved]
  - Cough [Recovered/Resolved]
  - Tachypnoea [Recovering/Resolving]
  - General physical health deterioration [Unknown]
  - Pyrexia [Recovered/Resolved]
  - Pneumonia [Recovering/Resolving]
  - Heart rate increased [Recovered/Resolved]
  - Pyrexia [Recovered/Resolved]
  - Pyrexia [Unknown]
  - Oropharyngeal pain [Unknown]
  - Ear inflammation [Unknown]

NARRATIVE: CASE EVENT DATE: 20230319
